FAERS Safety Report 9798508 (Version 1)
Quarter: 2014Q1

REPORT INFORMATION
  Report Type: Spontaneous
  Country: US (occurrence: US)
  Receive Date: 20140106
  Receipt Date: 20140106
  Transmission Date: 20141002
  Serious: Yes (Other)
  Sender: FDA-Public Use
  Company Number: US-BAYER-2013-158708

PATIENT
  Sex: Female

DRUGS (2)
  1. ALEVE CAPLET [Suspect]
     Indication: PAIN
     Dosage: UNK
     Dates: end: 201312
  2. VOLTAREN [DICLOFENAC] [Suspect]
     Indication: PAIN
     Dosage: 4 GM QD
     Dates: start: 201208, end: 201312

REACTIONS (3)
  - Abasia [None]
  - Local swelling [None]
  - Oedema [None]
